FAERS Safety Report 17242993 (Version 1)
Quarter: 2019Q4

REPORT INFORMATION
  Report Type: Spontaneous
  Country: US (occurrence: US)
  Receive Date: 20191212
  Receipt Date: 20191212
  Transmission Date: 20200122
  Serious: Yes (Hospitalization)
  Sender: FDA-Public Use
  Company Number: None

PATIENT
  Age: 45 Year
  Sex: Female

DRUGS (2)
  1. TADALAFIL 20MG [Suspect]
     Active Substance: TADALAFIL
     Route: 048
     Dates: start: 20181114
  2. AMBRISENTAN 10MG [Suspect]
     Active Substance: AMBRISENTAN
     Indication: HYPERTENSION
     Route: 048
     Dates: start: 20190917

REACTIONS (2)
  - Unresponsive to stimuli [None]
  - Loss of consciousness [None]

NARRATIVE: CASE EVENT DATE: 20191112
